FAERS Safety Report 4308144-X (Version None)
Quarter: 2004Q1

REPORT INFORMATION
  Report Type: 
  Country: None (occurrence: None)
  Receive Date: 20040301
  Receipt Date: 20030612
  Transmission Date: 20041129
  Serious: No
  Sender: FDA-Public Use
  Company Number: US-BRISTOL-MYERS SQUIBB COMPANY-12299632

PATIENT
  Age: 75 Year
  Sex: Male
  Weight: 79 kg

DRUGS (10)
  1. GLUCOPHAGE [Suspect]
     Indication: DIABETES MELLITUS
     Dosage: DURATION OF THERAPY:  ^LAST 2 OR 3 YEARS^
     Route: 048
  2. NIASPAN [Suspect]
     Dates: start: 20021201
  3. MULTIVITAMIN [Concomitant]
  4. NADOLOL [Concomitant]
  5. ZYRTEC [Concomitant]
  6. HYZAAR [Concomitant]
  7. COUMADIN [Concomitant]
  8. GLYBURIDE [Concomitant]
  9. DIGITEK [Concomitant]
  10. ISOSORBIDE [Concomitant]

REACTIONS (1)
  - BLOOD GLUCOSE INCREASED [None]
